FAERS Safety Report 11264905 (Version 1)
Quarter: 2015Q3

REPORT INFORMATION
  Report Type: Spontaneous
  Country: DE (occurrence: None)
  Receive Date: 20150709
  Receipt Date: 20150709
  Transmission Date: 20151125
  Serious: Yes (Hospitalization, Other)
  Sender: FDA-Public Use
  Company Number: INT_00825_2015

PATIENT
  Age: 47 Year
  Sex: Female

DRUGS (2)
  1. GEMCITABINE [Suspect]
     Active Substance: GEMCITABINE\GEMCITABINE HYDROCHLORIDE
     Indication: ADENOCARCINOMA
     Dates: start: 201302, end: 201311
  2. CISPLATIN. [Suspect]
     Active Substance: CISPLATIN
     Dates: start: 201302, end: 201311

REACTIONS (4)
  - Polyneuropathy [None]
  - Thrombocytopenia [None]
  - Fatigue [None]
  - Peritonitis bacterial [None]

NARRATIVE: CASE EVENT DATE: 2013
